FAERS Safety Report 15835364 (Version 2)
Quarter: 2020Q1

REPORT INFORMATION
  Report Type: Spontaneous
  Country: US (occurrence: US)
  Receive Date: 20190117
  Receipt Date: 20200106
  Transmission Date: 20200409
  Serious: Yes (Other)
  Sender: FDA-Public Use
  Company Number: US-BRISTOL-MYERS SQUIBB COMPANY-BMS-2019-002353

PATIENT
  Sex: Male

DRUGS (1)
  1. ORENCIA [Suspect]
     Active Substance: ABATACEPT
     Indication: PRODUCT USED FOR UNKNOWN INDICATION
     Dosage: INJECT 125 MG, ONCE WEEKLY
     Route: 058

REACTIONS (7)
  - Off label use [Unknown]
  - Neoplasm [Unknown]
  - Diabetes mellitus [Not Recovered/Not Resolved]
  - Peripheral swelling [Not Recovered/Not Resolved]
  - Swelling [Unknown]
  - Dementia [Not Recovered/Not Resolved]
  - Eye pain [Unknown]
